FAERS Safety Report 12833927 (Version 11)
Quarter: 2019Q1

REPORT INFORMATION
  Report Type: Report from Study
  Country: CA (occurrence: CA)
  Receive Date: 20161010
  Receipt Date: 20190309
  Transmission Date: 20190417
  Serious: Yes (Other)
  Sender: FDA-Public Use
  Company Number: PHHY2014CA159469

PATIENT
  Age: 66 Year
  Sex: Female

DRUGS (5)
  1. SANDOSTATIN LAR DEPOT [Suspect]
     Active Substance: OCTREOTIDE ACETATE
     Dosage: 30 MG, QMO
     Route: 030
     Dates: start: 20150220
  2. SANDOSTATIN LAR DEPOT [Suspect]
     Active Substance: OCTREOTIDE ACETATE
     Dosage: 40 MG, QMO
     Route: 030
     Dates: start: 20160524
  3. CABERGOLINE. [Concomitant]
     Active Substance: CABERGOLINE
     Indication: ACROMEGALY
     Dosage: 0.5 MG, 1/2 TABLET ON MONDAYS AND THURSDAY,
     Route: 065
     Dates: start: 201705
  4. SANDOSTATIN LAR DEPOT [Suspect]
     Active Substance: OCTREOTIDE ACETATE
     Indication: ACROMEGALY
     Dosage: 20 MG, QMO
     Route: 030
     Dates: start: 20141031
  5. CRESTOR [Concomitant]
     Active Substance: ROSUVASTATIN CALCIUM
     Indication: LOW DENSITY LIPOPROTEIN INCREASED
     Route: 065

REACTIONS (12)
  - Diarrhoea [Unknown]
  - Pain [Unknown]
  - Injection site cellulitis [Recovering/Resolving]
  - Diabetes mellitus [Unknown]
  - Blood pressure increased [Unknown]
  - Low density lipoprotein increased [Unknown]
  - Hypertension [Unknown]
  - Stress [Unknown]
  - Fracture blisters [Unknown]
  - Contusion [Unknown]
  - Blood pressure decreased [Unknown]
  - Alopecia [Unknown]

NARRATIVE: CASE EVENT DATE: 2014
